FAERS Safety Report 14403546 (Version 1)
Quarter: 2018Q1

REPORT INFORMATION
  Report Type: Spontaneous
  Country: US (occurrence: US)
  Receive Date: 20180116
  Receipt Date: 20180116
  Transmission Date: 20180509
  Serious: No
  Sender: FDA-Public Use
  Company Number: None

PATIENT
  Age: 17 Year
  Sex: Female

DRUGS (1)
  1. METHYLPHENIDATE ER [Suspect]
     Active Substance: METHYLPHENIDATE
     Indication: ATTENTION DEFICIT/HYPERACTIVITY DISORDER
     Dosage: 36 TAB 1 AM PO
     Route: 048
     Dates: start: 201710

REACTIONS (5)
  - Loss of personal independence in daily activities [None]
  - Dizziness [None]
  - Nausea [None]
  - Feeding disorder [None]
  - Disturbance in attention [None]
